FAERS Safety Report 21633827 (Version 2)
Quarter: 2023Q1

REPORT INFORMATION
  Report Type: Spontaneous
  Country: BD (occurrence: BD)
  Receive Date: 20221123
  Receipt Date: 20230123
  Transmission Date: 20230418
  Serious: Yes (Other)
  Sender: FDA-Public Use
  Company Number: BD-002147023-NVSC2022BD263030

PATIENT
  Sex: Female

DRUGS (1)
  1. GLYCOPYRROLATE [Suspect]
     Active Substance: GLYCOPYRROLATE
     Indication: Product used for unknown indication
     Route: 065

REACTIONS (4)
  - Anaphylactic shock [Unknown]
  - Nausea [Unknown]
  - Vomiting [Unknown]
  - Product physical issue [Unknown]
